FAERS Safety Report 9308474 (Version 3)
Quarter: 2013Q2

REPORT INFORMATION
  Report Type: Spontaneous
  Country: JP (occurrence: JP)
  Receive Date: 20130524
  Receipt Date: 20130613
  Transmission Date: 20140414
  Serious: Yes (Hospitalization)
  Sender: FDA-Public Use
  Company Number: JP-AMGEN-JPNSP2013035961

PATIENT
  Age: 80 Year
  Sex: Male

DRUGS (9)
  1. ARANESP [Suspect]
     Indication: NEPHROGENIC ANAEMIA
     Dosage: 180 MUG, 1X/4WEEKS
     Route: 040
  2. TAKEPRON [Concomitant]
     Dosage: 15 MG, QD
     Route: 048
  3. ADALAT L [Concomitant]
     Dosage: 20 MG, BID
     Route: 048
  4. LASIX                              /00032601/ [Concomitant]
     Dosage: 40 MG, QD
     Route: 048
  5. LENDORMIN [Concomitant]
     Dosage: 0.25 MG, QD
     Route: 048
  6. CALONAL [Concomitant]
     Dosage: 800 MG, QD
     Route: 048
  7. ZYLORIC [Concomitant]
     Dosage: 50 MG, QD
     Route: 048
  8. BAYASPIRIN [Concomitant]
     Dosage: 100 MG, QD
     Route: 048
  9. MYSLEE [Concomitant]
     Dosage: 5 MG, QD
     Route: 048

REACTIONS (1)
  - Myelodysplastic syndrome [Not Recovered/Not Resolved]
